FAERS Safety Report 12060395 (Version 1)
Quarter: 2016Q1

REPORT INFORMATION
  Report Type: Report from Study
  Country: GB (occurrence: GB)
  Receive Date: 20160210
  Receipt Date: 20160210
  Transmission Date: 20160526
  Serious: Yes (Hospitalization)
  Sender: FDA-Public Use
  Company Number: GB-ABBVIE-16K-167-1553944-00

PATIENT
  Age: 70 Year
  Sex: Male

DRUGS (1)
  1. HUMIRA [Suspect]
     Active Substance: ADALIMUMAB
     Indication: PRODUCT USED FOR UNKNOWN INDICATION
     Route: 058
     Dates: start: 20050819

REACTIONS (3)
  - Bronchiectasis [Unknown]
  - Infective exacerbation of bronchiectasis [Unknown]
  - Infective exacerbation of bronchiectasis [Unknown]

NARRATIVE: CASE EVENT DATE: 20151016
